FAERS Safety Report 8216939-5 (Version None)
Quarter: 2012Q1

REPORT INFORMATION
  Report Type: 
  Country: None (occurrence: None)
  Receive Date: 20120319
  Receipt Date: 20120305
  Transmission Date: 20120608
  Serious: Yes (Other)
  Sender: FDA-Public Use
  Company Number: JP-BRISTOL-MYERS SQUIBB COMPANY-16451429

PATIENT

DRUGS (2)
  1. ERBITUX [Suspect]
     Indication: COLORECTAL CANCER
     Route: 041
  2. IRINOTECAN HCL [Concomitant]
     Indication: COLORECTAL CANCER

REACTIONS (1)
  - BILE DUCT CANCER [None]
